FAERS Safety Report 19633621 (Version 1)
Quarter: 2021Q3

REPORT INFORMATION
  Report Type: Spontaneous
  Country: US (occurrence: US)
  Receive Date: 20210730
  Receipt Date: 20210730
  Transmission Date: 20211014
  Serious: No
  Sender: FDA-Public Use
  Company Number: US-TEVA-2021-US-1936598

PATIENT
  Sex: Female

DRUGS (1)
  1. TEVA METFORMIN [Suspect]
     Active Substance: METFORMIN HYDROCHLORIDE
     Indication: DIABETES MELLITUS
     Route: 065
     Dates: end: 2020

REACTIONS (2)
  - Recalled product administered [Unknown]
  - Drug ineffective [Unknown]
